FAERS Safety Report 6433479-4 (Version None)
Quarter: 2009Q4

REPORT INFORMATION
  Report Type: 
  Country: None (occurrence: None)
  Receive Date: 20091106
  Receipt Date: 20091106
  Transmission Date: 20100525
  Serious: Yes (Death)
  Sender: FDA-Public Use
  Company Number: None

PATIENT
  Age: 66 Year
  Sex: Male
  Weight: 66.2 kg

DRUGS (5)
  1. PEMETREXED [Suspect]
     Indication: NON-SMALL CELL LUNG CANCER
     Dosage: 500MG/M2 IV Q 21 DAYS
     Route: 042
     Dates: start: 20090825
  2. APRICOXIB/PLACEBO [Suspect]
     Indication: NON-SMALL CELL LUNG CANCER
     Dosage: 400MG PO DAILY
     Route: 048
     Dates: start: 20090825, end: 20090907
  3. FOLIC ACID [Concomitant]
  4. OXYFAST [Concomitant]
  5. FENTANYL-50 [Concomitant]

REACTIONS (1)
  - GENERAL PHYSICAL HEALTH DETERIORATION [None]
